FAERS Safety Report 20516055 (Version 1)
Quarter: 2022Q1

REPORT INFORMATION
  Report Type: Spontaneous
  Country: ES (occurrence: ES)
  Receive Date: 20220225
  Receipt Date: 20220225
  Transmission Date: 20220423
  Serious: Yes (Life-Threatening, Hospitalization, Disabling, Other)
  Sender: FDA-Public Use
  Company Number: ES-LABALTER-2019000031

PATIENT
  Age: 40 Year
  Sex: Female

DRUGS (1)
  1. DULOXETINE [Suspect]
     Active Substance: DULOXETINE
     Indication: Depression
     Dosage: 80 DOSAGE FORM (80 TABLETS OF 30 MG DULOXETINE (OVERDOSE))
     Route: 048
     Dates: start: 2018, end: 2018

REACTIONS (6)
  - Opsoclonus myoclonus [Recovered/Resolved]
  - Hallucination, visual [Recovered/Resolved]
  - Intentional overdose [Recovered/Resolved]
  - Tremor [Recovered/Resolved]
  - Vision blurred [Recovered/Resolved]
  - Gait disturbance [Recovered/Resolved]

NARRATIVE: CASE EVENT DATE: 20180101
